FAERS Safety Report 5328743-6 (Version None)
Quarter: 2007Q2

REPORT INFORMATION
  Report Type: 
  Country: None (occurrence: None)
  Receive Date: 20070518
  Receipt Date: 20070508
  Transmission Date: 20071010
  Serious: Yes (Hospitalization)
  Sender: FDA-Public Use
  Company Number: US-AVENTIS-200713447US

PATIENT
  Age: 50 Year
  Sex: Female

DRUGS (3)
  1. LANTUS [Suspect]
     Dates: end: 20070510
  2. LANTUS [Suspect]
     Dates: start: 20070510
  3. HUMALOG                            /00030501/ [Suspect]
     Dosage: DOSE: SLIDING SCALE 5-10 UNITS

REACTIONS (8)
  - BLOOD GLUCOSE INCREASED [None]
  - DIABETIC KETOACIDOSIS [None]
  - DRUG INEFFECTIVE [None]
  - DYSPNOEA [None]
  - FALL [None]
  - HYPERGLYCAEMIA [None]
  - MALAISE [None]
  - SYNCOPE [None]
